FAERS Safety Report 8830280 (Version 1)
Quarter: 2012Q4

REPORT INFORMATION
  Report Type: 
  Country: DE (occurrence: DE)
  Receive Date: 20121009
  Receipt Date: 20121009
  Transmission Date: 20130627
  Serious: Yes (Other)
  Sender: FDA-Public Use
  Company Number: DE-JNJFOC-20121000371

PATIENT
  Age: 17 Year
  Sex: Male
  Weight: 84 kg

DRUGS (1)
  1. CONCERTA RETARD [Suspect]
     Indication: DRUG ABUSE
     Route: 048
     Dates: start: 20120929

REACTIONS (5)
  - Drug abuse [Unknown]
  - Pallor [Unknown]
  - Vertigo [Unknown]
  - Sleep disorder [Unknown]
  - Cold sweat [Unknown]
